FAERS Safety Report 5479069-1 (Version None)
Quarter: 2007Q4

REPORT INFORMATION
  Report Type: 
  Country: None (occurrence: None)
  Receive Date: 20071006
  Receipt Date: 20070924
  Transmission Date: 20080405
  Serious: Yes (Hospitalization)
  Sender: FDA-Public Use
  Company Number: US-PFIZER INC-2007081192

PATIENT
  Sex: Female

DRUGS (4)
  1. EXEMESTANE [Suspect]
     Indication: BREAST CANCER
     Route: 048
     Dates: start: 20070410, end: 20070914
  2. DOXORUBICIN HYDROCHLORIDE [Suspect]
  3. CYCLOPHOSPHAMIDE [Suspect]
  4. TRIPTORELIN [Suspect]
     Indication: BREAST CANCER
     Route: 030
     Dates: start: 20070410, end: 20070910

REACTIONS (1)
  - LEFT VENTRICULAR DYSFUNCTION [None]
